FAERS Safety Report 8315359-2 (Version None)
Quarter: 2012Q2

REPORT INFORMATION
  Report Type: 
  Country: None (occurrence: None)
  Receive Date: 20120426
  Receipt Date: 20120419
  Transmission Date: 20120825
  Serious: Yes (Death, Other)
  Sender: FDA-Public Use
  Company Number: FR-CELGENEUS-056-20785-11121559

PATIENT
  Age: 14 Year
  Sex: Female
  Weight: 27.6 kg

DRUGS (5)
  1. THALIDOMIDE [Suspect]
     Indication: NEUROFIBROMATOSIS
     Dosage: 100 MILLIGRAM
     Route: 048
     Dates: start: 20061001, end: 20101201
  2. OXYCODONE HCL [Concomitant]
     Dosage: 15 MILLIGRAM
     Route: 065
  3. OXYCODONE HCL [Concomitant]
     Route: 041
  4. LYRICA [Concomitant]
     Dosage: 150 MILLIGRAM
     Route: 065
  5. THALIDOMIDE [Suspect]
     Dosage: 50 MILLIGRAM
     Route: 048
     Dates: start: 20110222

REACTIONS (2)
  - NEUROFIBROMA [None]
  - NEUROPATHY PERIPHERAL [None]
